FAERS Safety Report 4280888-8 (Version None)
Quarter: 2004Q1

REPORT INFORMATION
  Report Type: 
  Country: None (occurrence: None)
  Receive Date: 20040129
  Receipt Date: 20031021
  Transmission Date: 20041129
  Serious: Yes (Life-Threatening, Hospitalization)
  Sender: FDA-Public Use
  Company Number: US-GLAXOSMITHKLINE-A0431158A

PATIENT
  Age: 34 Year
  Sex: Female
  Weight: 70.9 kg

DRUGS (2)
  1. WELLBUTRIN [Suspect]
     Indication: DEPRESSION
     Dosage: 300MG PER DAY
     Route: 048
     Dates: start: 20031003, end: 20031011
  2. NONE [Concomitant]

REACTIONS (4)
  - AMNESIA [None]
  - GRAND MAL CONVULSION [None]
  - JOINT DISLOCATION [None]
  - TONGUE BITING [None]
